FAERS Safety Report 6617552-3 (Version None)
Quarter: 2010Q1

REPORT INFORMATION
  Report Type: 
  Country: None (occurrence: None)
  Receive Date: 20100223
  Receipt Date: 20091022
  Transmission Date: 20100710
  Serious: No
  Sender: FDA-Public Use
  Company Number: 8053573

PATIENT
  Sex: Female

DRUGS (1)
  1. CIMZIA [Suspect]
     Dosage: SUBCUTANEOUS
     Route: 058
     Dates: start: 20090626

REACTIONS (3)
  - COUGH [None]
  - MUSCULOSKELETAL CHEST PAIN [None]
  - RESPIRATORY TRACT IRRITATION [None]
